FAERS Safety Report 15370844 (Version 1)
Quarter: 2018Q3

REPORT INFORMATION
  Report Type: Spontaneous
  Country: TR (occurrence: TR)
  Receive Date: 20180911
  Receipt Date: 20180911
  Transmission Date: 20181010
  Serious: Yes (Hospitalization)
  Sender: FDA-Public Use
  Company Number: TR-MYLANLABS-2018M1064844

PATIENT
  Age: 25 Year
  Sex: Male
  Weight: 70 kg

DRUGS (6)
  1. HUMAN CHORIONIC GONADOTROPIN [Suspect]
     Active Substance: GONADOTROPHIN, CHORIONIC
     Indication: SECONDARY HYPOGONADISM
     Dosage: 1500 UNITS, THREE TIMES A WEEK
     Route: 065
  2. METHYLPHENIDATE. [Concomitant]
     Active Substance: METHYLPHENIDATE
     Indication: ATTENTION DEFICIT/HYPERACTIVITY DISORDER
     Route: 065
  3. ESCITALOPRAM [Concomitant]
     Active Substance: ESCITALOPRAM OXALATE
     Indication: ATTENTION DEFICIT/HYPERACTIVITY DISORDER
     Route: 065
  4. TESTOSTERONE. [Suspect]
     Active Substance: TESTOSTERONE
     Indication: SECONDARY HYPOGONADISM
     Dosage: 250 UNITS
     Route: 065
  5. QUETIAPINE. [Concomitant]
     Active Substance: QUETIAPINE
     Indication: IMPULSE-CONTROL DISORDER
     Route: 065
  6. OLANZAPINE. [Concomitant]
     Active Substance: OLANZAPINE
     Indication: ATTENTION DEFICIT/HYPERACTIVITY DISORDER
     Route: 065

REACTIONS (3)
  - Hypomania [Recovered/Resolved]
  - Bipolar disorder [Recovered/Resolved]
  - Depression [Recovered/Resolved]
